FAERS Safety Report 6973564-1 (Version None)
Quarter: 2010Q3

REPORT INFORMATION
  Report Type: 
  Country: None (occurrence: None)
  Receive Date: 20100909
  Receipt Date: 20100901
  Transmission Date: 20110219
  Serious: Yes (Hospitalization)
  Sender: FDA-Public Use
  Company Number: CA-SOLVAY-00310003800

PATIENT
  Age: 35 Year
  Sex: Male
  Weight: 100 kg

DRUGS (1)
  1. ANDROGEL [Suspect]
     Indication: BLOOD TESTOSTERONE DECREASED
     Dosage: DAILY DOSE: 5 GRAM(S), PACKET
     Route: 061
     Dates: start: 20030313, end: 20090620

REACTIONS (1)
  - PULMONARY EMBOLISM [None]
